FAERS Safety Report 6120348-2 (Version None)
Quarter: 2009Q1

REPORT INFORMATION
  Report Type: 
  Country: None (occurrence: None)
  Receive Date: 20090312
  Receipt Date: 20090312
  Transmission Date: 20090719
  Serious: Yes (Disabling)
  Sender: FDA-Public Use
  Company Number: None

PATIENT
  Age: 74 Year
  Sex: Female
  Weight: 82.5547 kg

DRUGS (1)
  1. SALSALATE 750 MG. [Suspect]
     Indication: ARTHRITIS
     Dosage: 750 MG 3 A DAY
     Dates: start: 20070101, end: 20080101

REACTIONS (3)
  - DEAFNESS UNILATERAL [None]
  - HYPOACUSIS [None]
  - TINNITUS [None]
